FAERS Safety Report 12136523 (Version 2)
Quarter: 2016Q1

REPORT INFORMATION
  Report Type: Spontaneous
  Country: TR (occurrence: TR)
  Receive Date: 20160302
  Receipt Date: 20160324
  Transmission Date: 20160526
  Serious: Yes (Hospitalization)
  Sender: FDA-Public Use
  Company Number: TR-SA-2016SA037015

PATIENT
  Age: 32 Year
  Sex: Female
  Weight: 72 kg

DRUGS (3)
  1. ARAVA [Suspect]
     Active Substance: LEFLUNOMIDE
     Indication: RHEUMATOID ARTHRITIS
     Route: 048
     Dates: start: 201601, end: 20160217
  2. SELECTRA [Concomitant]
     Indication: DEPRESSION
     Dosage: STRENGHT: 50 MG?FREQUENCY:1X1?START DATE: 1 MONTH AGO
     Route: 048
     Dates: start: 201601, end: 20160217
  3. XANAX [Concomitant]
     Active Substance: ALPRAZOLAM
     Indication: DEPRESSION
     Dosage: STRENGHT: 0.5MG?FREQUENCY:1X1?START DATE: 1 MONTH AGO
     Route: 048
     Dates: start: 201601, end: 20160217

REACTIONS (3)
  - Abortion spontaneous [Unknown]
  - Vaginal haemorrhage [Recovered/Resolved]
  - Exposure during pregnancy [Unknown]

NARRATIVE: CASE EVENT DATE: 201602
